FAERS Safety Report 9016147 (Version 2)
Quarter: 2013Q1

REPORT INFORMATION
  Report Type: Spontaneous
  Country: DE (occurrence: DE)
  Receive Date: 20130116
  Receipt Date: 20130208
  Transmission Date: 20140127
  Serious: Yes (Other)
  Sender: FDA-Public Use
  Company Number: DE-VERTEX PHARMACEUTICALS INC.-2013-000681

PATIENT
  Age: 76 Year
  Sex: Female
  Weight: 67 kg

DRUGS (3)
  1. INCIVO [Suspect]
     Indication: CHRONIC HEPATITIS C
     Dosage: 2250 MG, QD
     Route: 048
     Dates: start: 20111116, end: 20120119
  2. PEGINTERFERON ALFA-2A [Suspect]
     Indication: CHRONIC HEPATITIS C
     Dosage: 180 ?G, QW
     Route: 058
     Dates: start: 20111116, end: 20120119
  3. RIBAVIRIN [Suspect]
     Indication: CHRONIC HEPATITIS C
     Route: 048
     Dates: start: 20111116, end: 20120119

REACTIONS (2)
  - Oedema [Unknown]
  - Anaemia [Not Recovered/Not Resolved]
